FAERS Safety Report 17694506 (Version 1)
Quarter: 2020Q2

REPORT INFORMATION
  Report Type: Spontaneous
  Country: IT (occurrence: IT)
  Receive Date: 20200422
  Receipt Date: 20200422
  Transmission Date: 20200714
  Serious: Yes (Other)
  Sender: FDA-Public Use
  Company Number: IT-ASTRAZENECA-2020SE53255

PATIENT
  Age: 49 Year
  Sex: Male

DRUGS (4)
  1. GEFITINIB. [Suspect]
     Active Substance: GEFITINIB
     Indication: LUNG ADENOCARCINOMA STAGE IV
     Route: 048
     Dates: start: 201705
  2. GEFITINIB. [Suspect]
     Active Substance: GEFITINIB
     Indication: EGFR GENE MUTATION
     Route: 048
     Dates: start: 201705
  3. OSIMERTINIB. [Suspect]
     Active Substance: OSIMERTINIB
     Route: 048
     Dates: start: 20171224
  4. DEXAMETHASONE. [Concomitant]
     Active Substance: DEXAMETHASONE

REACTIONS (2)
  - Malignant neoplasm progression [Unknown]
  - Off label use [Unknown]

NARRATIVE: CASE EVENT DATE: 20171205
